FAERS Safety Report 9882212 (Version 1)
Quarter: 2014Q1

REPORT INFORMATION
  Report Type: Spontaneous
  Country: IT (occurrence: IT)
  Receive Date: 20140207
  Receipt Date: 20140207
  Transmission Date: 20141002
  Serious: Yes (Other)
  Sender: FDA-Public Use
  Company Number: PHHY2014IT013439

PATIENT
  Sex: Female

DRUGS (3)
  1. ATENOLOL [Suspect]
     Dates: start: 20130101, end: 20131210
  2. PREVEX [Concomitant]
     Dosage: 5 MG, UNK
  3. CARDIRENE [Concomitant]
     Dosage: 75 MG, UNK

REACTIONS (1)
  - Presyncope [Recovering/Resolving]
